FAERS Safety Report 4830716-4 (Version None)
Quarter: 2005Q4

REPORT INFORMATION
  Report Type: 
  Country: None (occurrence: None)
  Receive Date: 20051117
  Receipt Date: 20051114
  Transmission Date: 20060501
  Serious: Yes (Death)
  Sender: FDA-Public Use
  Company Number: PHHO2005LK17987

PATIENT

DRUGS (1)
  1. GLEEVEC [Suspect]

REACTIONS (2)
  - MOUTH ULCERATION [None]
  - ORAL INFECTION [None]
